FAERS Safety Report 17716404 (Version 7)
Quarter: 2020Q3

REPORT INFORMATION
  Report Type: Report from Study
  Country: US (occurrence: US)
  Receive Date: 20200428
  Receipt Date: 20200918
  Transmission Date: 20201102
  Serious: Yes (Hospitalization, Other)
  Sender: FDA-Public Use
  Company Number: US-PFIZER INC-2020037069

PATIENT
  Age: 69 Year
  Sex: Female

DRUGS (6)
  1. IBRANCE [Suspect]
     Active Substance: PALBOCICLIB
     Dosage: 75 MG, CYCLIC (DAILY FOR 21 DAYS OF 28 DAY CYCLE)
     Route: 048
     Dates: start: 20200410, end: 20200412
  2. IBRANCE [Suspect]
     Active Substance: PALBOCICLIB
     Dosage: 75 MG, DAILY FOR 21 DAYS OF 28?DAY CYCLE
     Route: 048
     Dates: start: 20200306, end: 20200517
  3. IBRANCE [Suspect]
     Active Substance: PALBOCICLIB
     Dosage: 100 MG, CYCLIC (DAILY, 21 DAYS ON OF A 28?DAY CYCLE)
     Route: 048
     Dates: start: 20200120, end: 20200213
  4. IBRANCE [Suspect]
     Active Substance: PALBOCICLIB
     Dosage: 75 MG, CYCLIC (DAILY 21 DAYS OF 28 DAY CYCLE)
     Route: 048
     Dates: start: 20200418, end: 20200517
  5. IBRANCE [Suspect]
     Active Substance: PALBOCICLIB
     Indication: BREAST CANCER FEMALE
     Dosage: 100 MG, CYCLIC (DAILY, 21 DAYS ON OF A 28?DAY CYCLE)
     Route: 048
     Dates: start: 20200109, end: 20200118
  6. IBRANCE [Suspect]
     Active Substance: PALBOCICLIB
     Dosage: 75 MG, CYCLIC (DAILY FOR 21 DAYS OF 28 DAY CYCLE)
     Route: 048
     Dates: start: 20200306, end: 20200403

REACTIONS (15)
  - Dizziness [Recovered/Resolved]
  - Decreased appetite [Not Recovered/Not Resolved]
  - Rash [Unknown]
  - Swelling face [Unknown]
  - Nausea [Recovered/Resolved]
  - Paraesthesia oral [Unknown]
  - Decreased activity [Unknown]
  - Leukopenia [Recovered/Resolved]
  - Vomiting [Recovered/Resolved]
  - Dehydration [Recovered/Resolved]
  - Seizure [Unknown]
  - Hypoaesthesia [Unknown]
  - Cough [Recovered/Resolved]
  - Fatigue [Unknown]
  - Paraesthesia [Unknown]

NARRATIVE: CASE EVENT DATE: 2020
